FAERS Safety Report 21366943 (Version 1)
Quarter: 2022Q3

REPORT INFORMATION
  Report Type: Spontaneous
  Country: US (occurrence: US)
  Receive Date: 20220923
  Receipt Date: 20220923
  Transmission Date: 20221027
  Serious: No
  Sender: FDA-Public Use
  Company Number: US-SA-SAC20220914001498

PATIENT
  Sex: Female
  Weight: 52.62 kg

DRUGS (6)
  1. DUPIXENT [Suspect]
     Active Substance: DUPILUMAB
     Indication: Dermatitis atopic
     Dosage: 300 MG, QOW
     Route: 058
     Dates: start: 20220816
  2. CALCIUM [Concomitant]
     Active Substance: CALCIUM
  3. BIOTIN [Concomitant]
     Active Substance: BIOTIN
  4. CLOBETASOL PROPIONATE [Concomitant]
     Active Substance: CLOBETASOL PROPIONATE
  5. TACLONEX [Concomitant]
     Active Substance: BETAMETHASONE DIPROPIONATE\CALCIPOTRIENE\CALCIPOTRIENE HYDRATE
  6. VITAMINS NOS [Concomitant]
     Active Substance: VITAMINS

REACTIONS (2)
  - Dermatitis atopic [Not Recovered/Not Resolved]
  - Therapeutic response shortened [Unknown]
